FAERS Safety Report 15034652 (Version 1)
Quarter: 2018Q2

REPORT INFORMATION
  Report Type: Spontaneous
  Country: DE (occurrence: DE)
  Receive Date: 20180620
  Receipt Date: 20180620
  Transmission Date: 20180711
  Serious: Yes (Hospitalization)
  Sender: FDA-Public Use
  Company Number: DE-TEVA-2018-DE-909172

PATIENT
  Age: 84 Year
  Sex: Female
  Weight: 60 kg

DRUGS (13)
  1. MOVICOL [Concomitant]
     Active Substance: POLYETHYLENE GLYCOL 3350\POTASSIUM CHLORIDE\SODIUM BICARBONATE\SODIUM CHLORIDE
     Dosage: 1-0-0-0, BAG
     Route: 048
  2. CARBAMAZEPINE. [Concomitant]
     Active Substance: CARBAMAZEPINE
     Dosage: 300 MG, 0.5-0-0.5-0, SUSTAINED-RELEASE TABLETS
     Route: 048
  3. FOLSAN [Concomitant]
     Active Substance: FOLIC ACID
     Dosage: 5 MILLIGRAM DAILY;
     Route: 048
  4. SORTIS 20MG [Concomitant]
     Dosage: 20 MILLIGRAM DAILY; 20 MG, 0-0-1-0, TABLET
     Route: 048
  5. METOPROLOL ABZ 50MG [Suspect]
     Active Substance: METOPROLOL
     Dosage: 50 MG, 0.5-0-0-0, TABLET
     Route: 048
  6. PANTOPRAZOL [Concomitant]
     Active Substance: PANTOPRAZOLE SODIUM
     Dosage: 40 MILLIGRAM DAILY; 40 MG, 1-0-0-0, TABLET
     Route: 048
  7. RAMIPRIL. [Suspect]
     Active Substance: RAMIPRIL
     Dosage: 5|25 MG, 1-0-0.5-0, TABLET
     Route: 048
  8. KOCHSALZ [Concomitant]
     Dosage: 1000 MG, 1-0-1-0, TABLET
     Route: 048
  9. ASPIRIN. [Concomitant]
     Active Substance: ASPIRIN
     Dosage: 100 MILLIGRAM DAILY;
     Route: 048
  10. SPASMEX 30MG [Concomitant]
     Dosage: 30 MILLIGRAM DAILY; 30 MG, 0-0-1-0, TABLET
     Route: 048
  11. L-THYROX HEXAL [Concomitant]
     Active Substance: LEVOTHYROXINE SODIUM
     Dosage: 112 ?G, 1-0-0-0, TABLET
     Route: 048
  12. KEPPRA 100MG [Concomitant]
     Dosage: 1000 MG, 1-0-1-0, TABLET
     Route: 048
  13. AMLODIPINE [Suspect]
     Active Substance: AMLODIPINE BESYLATE
     Dosage: 10 MILLIGRAM DAILY;
     Route: 048

REACTIONS (5)
  - Orthostatic intolerance [Recovered/Resolved]
  - Hypotension [Recovered/Resolved]
  - Wrong drug administered [Recovered/Resolved]
  - Dehydration [Recovered/Resolved]
  - Circulatory collapse [Recovered/Resolved]

NARRATIVE: CASE EVENT DATE: 20161101
